FAERS Safety Report 25287606 (Version 4)
Quarter: 2025Q3

REPORT INFORMATION
  Report Type: Spontaneous
  Country: US (occurrence: US)
  Receive Date: 20250509
  Receipt Date: 20250728
  Transmission Date: 20251020
  Serious: Yes (Disabling, Other)
  Sender: AMGEN
  Company Number: US-AMGEN-USASP2025087323

PATIENT
  Age: 62 Year
  Sex: Male
  Weight: 53 kg

DRUGS (26)
  1. TEPEZZA [Suspect]
     Active Substance: TEPROTUMUMAB-TRBW
     Indication: Graves^ disease
     Route: 040
     Dates: start: 2020
  2. TEPEZZA [Suspect]
     Active Substance: TEPROTUMUMAB-TRBW
     Indication: Endocrine ophthalmopathy
     Route: 040
     Dates: start: 2020
  3. TEPEZZA [Suspect]
     Active Substance: TEPROTUMUMAB-TRBW
     Route: 040
     Dates: start: 20210510
  4. TEPEZZA [Suspect]
     Active Substance: TEPROTUMUMAB-TRBW
     Route: 040
     Dates: start: 20210628, end: 202305
  5. PREDNISONE [Suspect]
     Active Substance: PREDNISONE
     Indication: Product used for unknown indication
     Route: 048
     Dates: start: 2019
  6. AZOPT [Concomitant]
     Active Substance: BRINZOLAMIDE
     Route: 047
  7. LUMIGAN [Concomitant]
     Active Substance: BIMATOPROST
     Route: 047
  8. PREDNISOLONE ACETATE [Concomitant]
     Active Substance: PREDNISOLONE ACETATE
     Route: 047
  9. TIMOLOL MALEATE [Concomitant]
     Active Substance: TIMOLOL MALEATE
     Route: 047
  10. VYZULTA [Concomitant]
     Active Substance: LATANOPROSTENE BUNOD
     Route: 047
  11. PROAIR HFA [Concomitant]
     Active Substance: ALBUTEROL SULFATE
     Route: 045
  12. ACETAZOLAMIDE [Concomitant]
     Active Substance: ACETAZOLAMIDE
     Route: 048
  13. ALENDRONATE [Concomitant]
     Active Substance: ALENDRONATE SODIUM
     Route: 048
  14. ATENOLOL [Concomitant]
     Active Substance: ATENOLOL
     Route: 048
  15. CALCIUM [Concomitant]
     Active Substance: CALCIUM
     Route: 048
  16. CLARITIN [Concomitant]
     Active Substance: LORATADINE
     Route: 048
  17. FINASTERIDE [Concomitant]
     Active Substance: FINASTERIDE
     Route: 048
  18. LEVOTHYROXINE [Concomitant]
     Active Substance: LEVOTHYROXINE
     Route: 048
  19. LEVOTHYROXINE [Concomitant]
     Active Substance: LEVOTHYROXINE
     Route: 048
  20. METFORMIN [Concomitant]
     Active Substance: METFORMIN HYDROCHLORIDE
     Route: 048
  21. PEPCID [Concomitant]
     Active Substance: FAMOTIDINE
     Route: 048
  22. SERTRALINE [Concomitant]
     Active Substance: SERTRALINE HYDROCHLORIDE
     Route: 048
  23. SERTRALINE [Concomitant]
     Active Substance: SERTRALINE HYDROCHLORIDE
     Route: 048
  24. TAMSULOSIN [Concomitant]
     Active Substance: TAMSULOSIN
     Route: 048
  25. LATANOPROST [Concomitant]
     Active Substance: LATANOPROST
     Route: 065
  26. INFLUENZA VIRUS VACCINE [Concomitant]
     Active Substance: INFLUENZA VIRUS VACCINE
     Route: 065

REACTIONS (17)
  - Endocrine ophthalmopathy [Unknown]
  - Graves^ disease [Unknown]
  - Otitis media chronic [Not Recovered/Not Resolved]
  - Dementia [Unknown]
  - Mixed deafness [Not Recovered/Not Resolved]
  - Emotional distress [Unknown]
  - Anxiety [Unknown]
  - Product use complaint [Unknown]
  - Chronic sinusitis [Not Recovered/Not Resolved]
  - Nervous system disorder [Unknown]
  - Rhinorrhoea [Unknown]
  - Upper-airway cough syndrome [Unknown]
  - Arthritis [Unknown]
  - Therapy interrupted [Unknown]
  - Ear pain [Unknown]
  - Ear discomfort [Unknown]
  - Eustachian tube disorder [Not Recovered/Not Resolved]

NARRATIVE: CASE EVENT DATE: 20210125
